FAERS Safety Report 4837200-2 (Version None)
Quarter: 2005Q4

REPORT INFORMATION
  Report Type: 
  Country: None (occurrence: None)
  Receive Date: 20051122
  Receipt Date: 20051111
  Transmission Date: 20060501
  Serious: Yes (Hospitalization, Other)
  Sender: FDA-Public Use
  Company Number: KII-2005-0019645

PATIENT
  Age: 15 Month
  Sex: Male

DRUGS (2)
  1. MORPHINE SULFATE [Suspect]
     Indication: ACCIDENTAL DRUG INTAKE BY CHILD
     Dosage: ORAL
     Route: 048
     Dates: start: 20051018, end: 20051018
  2. METHADONE HCL [Suspect]
     Indication: ACCIDENTAL DRUG INTAKE BY CHILD
     Dates: start: 20051018, end: 20051018

REACTIONS (7)
  - ACCIDENTAL DRUG INTAKE BY CHILD [None]
  - APNOEA [None]
  - COMA [None]
  - CYANOSIS [None]
  - HYPOVENTILATION [None]
  - LETHARGY [None]
  - MIOSIS [None]
